FAERS Safety Report 20634627 (Version 2)
Quarter: 2022Q2

REPORT INFORMATION
  Report Type: Report from Study
  Country: DE (occurrence: DE)
  Receive Date: 20220325
  Receipt Date: 20220406
  Transmission Date: 20220721
  Serious: Yes (Hospitalization, Other)
  Sender: FDA-Public Use
  Company Number: DE-ABBVIE-22K-062-4328311-00

PATIENT
  Age: 71 Year
  Sex: Female
  Weight: 73.548 kg

DRUGS (15)
  1. UPADACITINIB [Suspect]
     Active Substance: UPADACITINIB
     Indication: Rheumatoid arthritis
     Route: 048
  2. SARS-COV-2 VACCINE [Concomitant]
     Indication: Severe acute respiratory syndrome
     Route: 030
     Dates: start: 20210511, end: 20210511
  3. SARS-COV-2 VACCINE [Concomitant]
     Route: 030
     Dates: start: 20210622, end: 20210622
  4. VARICELLA-ZOSTER VIRUS STRAIN OKA/MERCK LIVE ANTIGEN [Concomitant]
     Active Substance: VARICELLA-ZOSTER VIRUS STRAIN OKA/MERCK LIVE ANTIGEN
     Indication: Herpes zoster immunisation
     Dates: start: 20210714, end: 20210714
  5. PREDNISOLONE [Concomitant]
     Active Substance: PREDNISOLONE
     Indication: Product used for unknown indication
     Route: 048
     Dates: start: 201105
  6. AMIODARONE [Concomitant]
     Active Substance: AMIODARONE
     Indication: Atrial fibrillation
     Route: 048
     Dates: start: 202011
  7. APIXABAN [Concomitant]
     Active Substance: APIXABAN
     Indication: Bundle branch block left
     Route: 048
     Dates: start: 201701
  8. METOPROLOL [Concomitant]
     Active Substance: METOPROLOL
     Indication: Mitral valve incompetence
     Route: 048
     Dates: start: 201701
  9. TORSEMIDE [Concomitant]
     Active Substance: TORSEMIDE
     Indication: Hypertension
     Route: 048
     Dates: start: 2011
  10. RAMIPRIL [Concomitant]
     Active Substance: RAMIPRIL
     Indication: Hypertension
     Route: 048
     Dates: start: 2011
  11. LEVOTHYROXINE [Concomitant]
     Active Substance: LEVOTHYROXINE
     Indication: Post procedural hypothyroidism
     Route: 048
     Dates: start: 1978
  12. ROSUVASTATIN [Concomitant]
     Active Substance: ROSUVASTATIN
     Indication: Hyperlipidaemia
     Route: 048
     Dates: start: 2020
  13. PANTOPRAZOLE SODIUM [Concomitant]
     Active Substance: PANTOPRAZOLE SODIUM
     Indication: Prophylaxis
     Route: 048
     Dates: start: 2018
  14. CHOLECALCIFEROL [Concomitant]
     Active Substance: CHOLECALCIFEROL
     Indication: Prophylaxis
     Route: 048
     Dates: start: 202106
  15. SHINGRIX [Concomitant]
     Active Substance: RECOMBINANT VARICELLA ZOSTER VIRUS (VZV) GLYCOPROTEIN E
     Indication: Immunisation

REACTIONS (5)
  - Hypertension [Recovered/Resolved]
  - Hypertensive crisis [Recovered/Resolved]
  - Red blood cell sedimentation rate abnormal [Unknown]
  - White blood cell count abnormal [Unknown]
  - C-reactive protein abnormal [Unknown]

NARRATIVE: CASE EVENT DATE: 20220203
